FAERS Safety Report 8575561-1 (Version None)
Quarter: 2012Q2

REPORT INFORMATION
  Report Type: 
  Country: None (occurrence: None)
  Receive Date: 20120423
  Receipt Date: 20091106
  Transmission Date: 20120825
  Serious: Yes (Hospitalization)
  Sender: FDA-Public Use
  Company Number: PHEH2009US13911

PATIENT
  Age: 79 Year
  Sex: Female
  Weight: 60.8 kg

DRUGS (1)
  1. EXJADE [Suspect]
     Indication: MYELODYSPLASTIC SYNDROME
     Dosage: 625 MG DAILY, ORAL
     Route: 048
     Dates: start: 20090310

REACTIONS (3)
  - CHOLANGITIS [None]
  - CHOLELITHIASIS [None]
  - VOMITING [None]
